FAERS Safety Report 9692067 (Version 4)
Quarter: 2015Q2

REPORT INFORMATION
  Report Type: Report from Study
  Country: US (occurrence: US)
  Receive Date: 20131118
  Receipt Date: 20150415
  Transmission Date: 20150821
  Serious: Yes (Other)
  Sender: FDA-Public Use
  Company Number: US-BIOGENIDEC-2013BI107841

PATIENT
  Age: 67 Year
  Sex: Female

DRUGS (2)
  1. AVONEX [Suspect]
     Active Substance: INTERFERON BETA-1A
     Indication: MULTIPLE SCLEROSIS
     Route: 030
     Dates: start: 19961101, end: 2005
  2. AVONEX [Suspect]
     Active Substance: INTERFERON BETA-1A
     Indication: MULTIPLE SCLEROSIS
     Route: 030

REACTIONS (22)
  - Malaise [Unknown]
  - Infection [Recovered/Resolved]
  - Otitis media [Unknown]
  - Ill-defined disorder [Unknown]
  - Urinary tract infection [Recovered/Resolved]
  - Labyrinthitis [Recovered/Resolved]
  - Hearing impaired [Recovered/Resolved]
  - Middle ear effusion [Recovered/Resolved]
  - Fall [Recovered/Resolved]
  - Urinary incontinence [Not Recovered/Not Resolved]
  - Visual impairment [Not Recovered/Not Resolved]
  - Dysgraphia [Not Recovered/Not Resolved]
  - Varicella [Unknown]
  - Gait disturbance [Not Recovered/Not Resolved]
  - Blindness [Recovered/Resolved]
  - Tremor [Recovered/Resolved]
  - Clostridium difficile infection [Recovered/Resolved]
  - Dehydration [Recovered/Resolved]
  - Drug ineffective [Unknown]
  - Invasive ductal breast carcinoma [Not Recovered/Not Resolved]
  - White blood cell count increased [Recovered/Resolved]
  - Ear infection [Recovered/Resolved]

NARRATIVE: CASE EVENT DATE: 2012
